FAERS Safety Report 17175420 (Version 1)
Quarter: 2019Q4

REPORT INFORMATION
  Report Type: Spontaneous
  Country: US (occurrence: US)
  Receive Date: 20191219
  Receipt Date: 20191219
  Transmission Date: 20200122
  Serious: No
  Sender: FDA-Public Use
  Company Number: US-UCBSA-117280

PATIENT
  Age: 52 Year
  Sex: Female

DRUGS (1)
  1. CIMZIA [Suspect]
     Active Substance: CERTOLIZUMAB PEGOL
     Indication: RHEUMATOID ARTHRITIS
     Dosage: BEEN ON CIMZIA 2-3 YEARS,STRENGTH: 200 MG, 1 SYRINGE EVEY 2 WEEKS

REACTIONS (2)
  - Alopecia [Unknown]
  - Trichorrhexis [Recovered/Resolved]
